FAERS Safety Report 8608230 (Version 2)
Quarter: 2014Q1

REPORT INFORMATION
  Report Type: Spontaneous
  Country: US (occurrence: US)
  Receive Date: 20120611
  Receipt Date: 20140129
  Transmission Date: 20141002
  Serious: No
  Sender: FDA-Public Use
  Company Number: US-ASTRAZENECA-2012SE35426

PATIENT
  Age: 69 Year
  Sex: 0

DRUGS (5)
  1. NEXIUM [Suspect]
     Route: 048
  2. NEXIUM [Suspect]
     Route: 048
     Dates: start: 20130703
  3. LEVOTHYROXIN [Concomitant]
     Dates: start: 20130716
  4. CYMBALTA [Concomitant]
     Dates: start: 20130716
  5. CYCLOBENZAPR [Concomitant]
     Dates: start: 20130719

REACTIONS (3)
  - Osteoporosis [Unknown]
  - Multiple fractures [Unknown]
  - Tooth infection [Unknown]
